FAERS Safety Report 7481654-2 (Version None)
Quarter: 2011Q2

REPORT INFORMATION
  Report Type: 
  Country: None (occurrence: None)
  Receive Date: 20110516
  Receipt Date: 20110503
  Transmission Date: 20111010
  Serious: Yes (Hospitalization)
  Sender: FDA-Public Use
  Company Number: AU-ELI_LILLY_AND_COMPANY-AU201103001231

PATIENT
  Sex: Female

DRUGS (19)
  1. ZYPREXA [Suspect]
     Dosage: 12.5 MG, QD
     Route: 048
     Dates: start: 20110114, end: 20110121
  2. MIRTAZAPINE [Concomitant]
     Dosage: 15 MG, EACH EVENING
     Dates: start: 20101026, end: 20101026
  3. OSTELIN [Concomitant]
     Dosage: 1 DF, BID
     Dates: start: 20101025, end: 20110122
  4. QUETIAPINE [Concomitant]
     Dosage: 25 MG, EACH EVENING
     Dates: start: 20101110, end: 20101123
  5. MIRTAZAPINE [Concomitant]
     Dosage: 45 MG, EACH EVENING
     Dates: start: 20101108, end: 20110122
  6. ZYPREXA [Suspect]
     Dosage: 5 MG, TID
     Route: 048
     Dates: start: 20101129, end: 20101217
  7. BLACKMORES B6 [Concomitant]
     Indication: SUPPLEMENTATION THERAPY
     Dosage: 1 DF, EACH MORNING
     Dates: start: 20101025, end: 20110122
  8. ZYPREXA [Suspect]
     Dosage: 10 MG, EACH EVENING
     Route: 048
     Dates: start: 20110122
  9. SERTRALINE HYDROCHLORIDE [Concomitant]
     Dosage: 100 MG, EACH MORNING
     Dates: start: 20110118, end: 20110122
  10. QUETIAPINE [Concomitant]
     Dosage: 25 MG, BID
     Dates: start: 20101029, end: 20101101
  11. ZYPREXA [Suspect]
     Dosage: 2.5 MG, TWICE DAILY AS NEEDED
     Route: 048
     Dates: start: 20101126, end: 20101224
  12. QUETIAPINE [Concomitant]
     Dosage: 25 MG, SINGLE
     Dates: start: 20101101, end: 20101102
  13. QUETIAPINE [Concomitant]
     Dosage: 12.5 MG, BID
     Dates: start: 20101109, end: 20101124
  14. SERTRALINE HYDROCHLORIDE [Concomitant]
     Dosage: 200 MG, EACH MORNING
     Dates: start: 20101025, end: 20110110
  15. ZYPREXA [Suspect]
     Indication: BIPOLAR DISORDER
     Dosage: 5 MG, BID
     Route: 048
     Dates: start: 20101124, end: 20101128
  16. ZYPREXA [Suspect]
     Dosage: 15 MG, QD
     Route: 048
     Dates: start: 20101217, end: 20110113
  17. MIRTAZAPINE [Concomitant]
     Dosage: 30 MG, EACH EVENING
     Dates: start: 20101027, end: 20101107
  18. SERTRALINE HYDROCHLORIDE [Concomitant]
     Dosage: 150 MG, EACH MORNING
     Dates: start: 20110111, end: 20110117
  19. QUETIAPINE [Concomitant]
     Dosage: 12.5 - 25 MG, TWICE DAILY AS NEEDED
     Dates: start: 20101025, end: 20101116

REACTIONS (2)
  - HOSPITALISATION [None]
  - DRUG EXPOSURE DURING PREGNANCY [None]
